FAERS Safety Report 17641806 (Version 1)
Quarter: 2020Q2

REPORT INFORMATION
  Report Type: Spontaneous
  Country: US (occurrence: US)
  Receive Date: 20200408
  Receipt Date: 20200408
  Transmission Date: 20200713
  Serious: No
  Sender: FDA-Public Use
  Company Number: US-009507513-2004USA000475

PATIENT
  Sex: Male

DRUGS (1)
  1. SYLATRON [Suspect]
     Active Substance: PEGINTERFERON ALFA-2B
     Dosage: UNK
     Dates: start: 2017

REACTIONS (2)
  - No adverse event [Unknown]
  - Circumstance or information capable of leading to medication error [Unknown]
